FAERS Safety Report 8761603 (Version 2)
Quarter: 2012Q4

REPORT INFORMATION
  Report Type: Spontaneous
  Country: US (occurrence: None)
  Receive Date: 20120821
  Receipt Date: 20121012
  Transmission Date: 20130627
  Serious: Yes (Other)
  Sender: FDA-Public Use
  Company Number: AUR-APL-2012-03554

PATIENT
  Age: 28 Year
  Sex: Male
  Weight: 59.86 kg

DRUGS (11)
  1. LISINOPRIL [Suspect]
     Indication: HYPERTENSION
  2. LYRICA (PREGABALIN) [Suspect]
     Indication: NERVE PAIN
  3. MARINOL [Suspect]
     Indication: HIV INFECTION
     Dosage: BEFORE LUNCH (2.5 MG, 2 IN 1 D)
     Dates: start: 201108
  4. MARINOL [Suspect]
     Indication: PAIN
     Dosage: BEFORE LUNCH (2.5 MG, 2 IN 1 D)
     Dates: start: 201108
  5. NORVIR [Suspect]
     Indication: HIV INFECTION
  6. NORVIR [Suspect]
     Indication: APPETITE DISORDER
  7. AMBIEN [Suspect]
     Indication: INSOMNIA
  8. TRUVADA [Suspect]
     Indication: DIABETES
  9. TRUVADA [Suspect]
     Indication: HIV INFECTION
  10. PREZISTA [Suspect]
     Indication: HIV INFECTION
  11. NORTRIPTYLINE [Suspect]
     Indication: DRUG USE FOR UNKNOWN INDICATION

REACTIONS (4)
  - Suicidal ideation [None]
  - Sleep disorder [None]
  - Off label use [None]
  - Tremor [None]
